FAERS Safety Report 5098903-0 (Version None)
Quarter: 2006Q3

REPORT INFORMATION
  Report Type: 
  Country: None (occurrence: None)
  Receive Date: 20060907
  Receipt Date: 20060703
  Transmission Date: 20061208
  Serious: Yes (Life-Threatening, Hospitalization, Other)
  Sender: FDA-Public Use
  Company Number: PHBS2006NO09866

PATIENT
  Age: 49 Year
  Sex: Female

DRUGS (1)
  1. OTRIFLU (NCH) [Suspect]
     Dosage: TWO 12.5 MG TABLETS/ONCE
     Route: 048
     Dates: start: 20060702, end: 20060702

REACTIONS (14)
  - ANAPHYLACTIC SHOCK [None]
  - CHOKING SENSATION [None]
  - CYANOSIS [None]
  - FAECAL INCONTINENCE [None]
  - FALL [None]
  - HAEMANGIOMA OF LIVER [None]
  - HYPOAESTHESIA [None]
  - PARAESTHESIA [None]
  - RESPIRATORY ARREST [None]
  - SECRETION DISCHARGE [None]
  - SYNCOPE [None]
  - TYPE I HYPERSENSITIVITY [None]
  - URINARY INCONTINENCE [None]
  - VOMITING [None]
